FAERS Safety Report 15135294 (Version 2)
Quarter: 2018Q3

REPORT INFORMATION
  Report Type: Spontaneous
  Country: PT (occurrence: PT)
  Receive Date: 20180712
  Receipt Date: 20180813
  Transmission Date: 20181010
  Serious: Yes (Disabling)
  Sender: FDA-Public Use
  Company Number: PT-PFIZER INC-2018276691

PATIENT
  Age: 68 Year
  Sex: Female

DRUGS (6)
  1. SINGULAIR [Concomitant]
     Active Substance: MONTELUKAST SODIUM
     Indication: RESPIRATORY DISORDER
     Dosage: 10 MG, 1X/DAY
     Route: 048
  2. OMEPRAZOLE. [Concomitant]
     Active Substance: OMEPRAZOLE
     Dosage: 20 MG, 1X/DAY
     Route: 048
  3. BRISOMAX [Concomitant]
     Active Substance: FLUTICASONE PROPIONATE\SALMETEROL XINAFOATE
     Indication: RESPIRATORY DISORDER
     Dosage: 2 DF, 1X/DAY
     Route: 055
  4. BETAMOX PLUS [Concomitant]
     Indication: INFECTION
     Dosage: 2 DF, 1X/DAY
     Route: 048
     Dates: start: 20180601
  5. CLONIX [Concomitant]
     Indication: TOOTHACHE
     Dosage: 1200 MG, 1X/DAY
     Route: 048
     Dates: start: 20180408
  6. DALACIN [Suspect]
     Active Substance: CLINDAMYCIN
     Indication: LIMB INJURY
     Dosage: 300 MG, 4X/DAY (TWO TABLETS EVERY SIX HOURS)
     Route: 048
     Dates: start: 20180601, end: 20180602

REACTIONS (4)
  - Oesophageal pain [Recovered/Resolved]
  - Product use in unapproved indication [Unknown]
  - Malaise [Recovered/Resolved]
  - Oropharyngeal pain [Recovered/Resolved]

NARRATIVE: CASE EVENT DATE: 20180601
